FAERS Safety Report 10083628 (Version 1)
Quarter: 2014Q2

REPORT INFORMATION
  Report Type: Spontaneous
  Country: US (occurrence: None)
  Receive Date: 20140416
  Receipt Date: 20140416
  Transmission Date: 20141212
  Serious: No
  Sender: FDA-Public Use
  Company Number: None

PATIENT
  Age: 48 Year
  Sex: Male
  Weight: 120.2 kg

DRUGS (9)
  1. CRESTOR [Suspect]
     Indication: BLOOD CHOLESTEROL INCREASED
     Route: 048
     Dates: start: 20140102, end: 20140228
  2. LOVAZA [Concomitant]
  3. DEPLIN [Concomitant]
  4. CUMINDIN [Concomitant]
  5. PLAVIX [Concomitant]
  6. VITA LEA MULTI VITAMIN [Concomitant]
  7. FIBER ONE [Concomitant]
  8. D3 [Concomitant]
  9. B COMPLEX [Concomitant]

REACTIONS (2)
  - Myalgia [None]
  - Gait disturbance [None]
